FAERS Safety Report 5994801-6 (Version None)
Quarter: 2008Q4

REPORT INFORMATION
  Report Type: 
  Country: None (occurrence: None)
  Receive Date: 20081212
  Receipt Date: 20080916
  Transmission Date: 20090506
  Serious: Yes (Hospitalization)
  Sender: FDA-Public Use
  Company Number: US-ABBOTT-08P-163-0476396-00

PATIENT
  Sex: Female
  Weight: 86.26 kg

DRUGS (7)
  1. HUMIRA [Suspect]
     Indication: CROHN'S DISEASE
     Dosage: LOADING DOSE
     Route: 058
     Dates: start: 20080806, end: 20080806
  2. HUMIRA [Suspect]
     Route: 058
     Dates: start: 20080821, end: 20080901
  3. MESALAMINE [Concomitant]
     Indication: CROHN'S DISEASE
     Dosage: 500MG X 4
     Route: 048
  4. SERTRALINE [Concomitant]
     Indication: DEPRESSION
     Route: 048
  5. LANSOPRAZOLE [Concomitant]
     Indication: PEPTIC ULCER
     Route: 048
  6. LORAZEPAM [Concomitant]
     Indication: DEPRESSION
     Dosage: 1MG (1/2 TAB)
     Route: 048
  7. TIOTIXENE [Concomitant]
     Indication: DEPRESSION
     Route: 048

REACTIONS (2)
  - HEADACHE [None]
  - PNEUMONIA [None]
